FAERS Safety Report 4868650-6 (Version None)
Quarter: 2005Q4

REPORT INFORMATION
  Report Type: 
  Country: None (occurrence: None)
  Receive Date: 20051223
  Receipt Date: 20051207
  Transmission Date: 20060501
  Serious: Yes (Hospitalization, Other)
  Sender: FDA-Public Use
  Company Number: DE_051117391

PATIENT
  Age: 53 Year
  Sex: Female
  Weight: 53 kg

DRUGS (2)
  1. EVISTA [Suspect]
     Indication: OSTEOPOROSIS PROPHYLAXIS
     Dates: start: 20030401, end: 20041001
  2. LAIF (HYPERICUM EXTRACT) [Concomitant]

REACTIONS (8)
  - CHONDROSARCOMA [None]
  - EXOSTOSIS [None]
  - LYMPHOEDEMA [None]
  - METASTASIS [None]
  - OSTEOCHONDROMA [None]
  - PLATELET COUNT INCREASED [None]
  - POST PROCEDURAL HAEMATOMA [None]
  - POSTOPERATIVE WOUND COMPLICATION [None]
